FAERS Safety Report 7647675-1 (Version None)
Quarter: 2011Q3

REPORT INFORMATION
  Report Type: 
  Country: None (occurrence: None)
  Receive Date: 20110801
  Receipt Date: 20110801
  Transmission Date: 20111222
  Serious: Yes (Other)
  Sender: FDA-Public Use
  Company Number: None

PATIENT
  Age: 74 Year
  Sex: Male
  Weight: 81.646 kg

DRUGS (1)
  1. FIRMAGON [Suspect]
     Indication: PROSTATE CANCER
     Route: 058
     Dates: start: 20110623, end: 20110928

REACTIONS (12)
  - HOT FLUSH [None]
  - PAIN [None]
  - ERYTHEMA [None]
  - HEADACHE [None]
  - INJECTION SITE PAIN [None]
  - CHILLS [None]
  - DELIRIUM [None]
  - INCONTINENCE [None]
  - EPISTAXIS [None]
  - INJECTION SITE SWELLING [None]
  - PYREXIA [None]
  - ORAL HERPES [None]
